FAERS Safety Report 13659506 (Version 1)
Quarter: 2017Q2

REPORT INFORMATION
  Report Type: Spontaneous
  Country: US (occurrence: US)
  Receive Date: 20170616
  Receipt Date: 20170616
  Transmission Date: 20170830
  Serious: Yes (Hospitalization)
  Sender: FDA-Public Use
  Company Number: None

PATIENT
  Age: 71 Year
  Sex: Female
  Weight: 127.8 kg

DRUGS (8)
  1. HUMULIN NOS [Concomitant]
     Active Substance: INSULIN HUMAN
  2. HYDRALAZINE [Concomitant]
     Active Substance: HYDRALAZINE HYDROCHLORIDE
  3. LOPRESSOR [Suspect]
     Active Substance: METOPROLOL TARTRATE
     Indication: HYPERTENSION
     Dosage: DATES OF USE - CHRONIC
     Route: 048
  4. CENTRUM SILVER [Concomitant]
     Active Substance: MINERALS\VITAMINS
  5. VITAMIN D3 [Concomitant]
     Active Substance: CHOLECALCIFEROL
  6. LASIX [Concomitant]
     Active Substance: FUROSEMIDE
  7. DILTIAZEM. [Suspect]
     Active Substance: DILTIAZEM
     Indication: HYPERTENSION
     Dosage: DATES OF USE - CHRONIC?DOSE - 120MG XR
     Route: 048
  8. ASPIRIN. [Concomitant]
     Active Substance: ASPIRIN

REACTIONS (4)
  - Bradycardia [None]
  - Acute kidney injury [None]
  - Inappropriate schedule of drug administration [None]
  - Hyperkalaemia [None]

NARRATIVE: CASE EVENT DATE: 20160813
